FAERS Safety Report 25105428 (Version 1)
Quarter: 2025Q1

REPORT INFORMATION
  Report Type: Spontaneous
  Country: GB (occurrence: GR)
  Receive Date: 20250321
  Receipt Date: 20250321
  Transmission Date: 20250409
  Serious: Yes (Death)
  Sender: TEVA
  Company Number: GR-ROCHE-3355060

PATIENT
  Age: 90 Year
  Sex: Female
  Weight: 67 kg

DRUGS (4)
  1. CAPECITABINE [Suspect]
     Active Substance: CAPECITABINE
     Indication: Neoplasm
     Route: 048
     Dates: start: 20221019, end: 20230509
  2. CIMETIDINE [Concomitant]
     Active Substance: CIMETIDINE
     Indication: Neoplasm
     Dosage: 20 MG EVERY 3 WEEKS (1AMP)
     Route: 042
  3. ACETAMINOPHEN [Concomitant]
     Active Substance: ACETAMINOPHEN
     Indication: Neoplasm
     Dosage: 1 G EVERY 3 WEEKS
     Route: 042
  4. BEVACIZUMAB [Suspect]
     Active Substance: BEVACIZUMAB
     Indication: Neoplasm
     Route: 042
     Dates: start: 20221019, end: 20240314

REACTIONS (2)
  - Death [Fatal]
  - Palmar-plantar erythrodysaesthesia syndrome [Not Recovered/Not Resolved]

NARRATIVE: CASE EVENT DATE: 20230224
